FAERS Safety Report 10081442 (Version 4)
Quarter: 2014Q2

REPORT INFORMATION
  Report Type: Report from Study
  Country: DE (occurrence: DE)
  Receive Date: 20140416
  Receipt Date: 20140529
  Transmission Date: 20141212
  Serious: Yes (Hospitalization)
  Sender: FDA-Public Use
  Company Number: PHHY2014DE042140

PATIENT
  Sex: Female
  Weight: 100 kg

DRUGS (2)
  1. AFINITOR [Suspect]
     Indication: BREAST CANCER METASTATIC
     Dosage: 10 MG, QD
     Route: 048
     Dates: start: 20131210, end: 20140213
  2. EXEMESTANE [Concomitant]
     Indication: BREAST CANCER METASTATIC
     Dosage: 25 MG, QD
     Route: 048
     Dates: start: 20131210, end: 20140213

REACTIONS (7)
  - Stasis dermatitis [Recovered/Resolved]
  - Pelvic venous thrombosis [Recovered/Resolved]
  - Deep vein thrombosis [Recovered/Resolved]
  - Gastritis erosive [Recovered/Resolved]
  - Upper gastrointestinal haemorrhage [Recovered/Resolved]
  - Gastric haemorrhage [Recovered/Resolved]
  - Anaemia [Recovered/Resolved]
